FAERS Safety Report 22540937 (Version 1)
Quarter: 2023Q2

REPORT INFORMATION
  Report Type: Report from Study
  Country: US (occurrence: None)
  Receive Date: 20230609
  Receipt Date: 20230609
  Transmission Date: 20230722
  Serious: Yes (Death)
  Sender: FDA-Public Use
  Company Number: 2023A133052

PATIENT
  Sex: Male

DRUGS (1)
  1. IMFINZI [Suspect]
     Active Substance: DURVALUMAB
     Dosage: 500MG/10ML VIAL (INFUSE 10MG/KG (910MG) INTRAVENOUSLY EVERY 14 DAYS)
     Route: 042

REACTIONS (1)
  - Death [Fatal]
